FAERS Safety Report 9636767 (Version 3)
Quarter: 2013Q4

REPORT INFORMATION
  Report Type: Spontaneous
  Country: IT (occurrence: IT)
  Receive Date: 20131022
  Receipt Date: 20131030
  Transmission Date: 20140711
  Serious: Yes (Hospitalization)
  Sender: FDA-Public Use
  Company Number: PHHY2013IT113700

PATIENT
  Sex: Female

DRUGS (7)
  1. PAROXETINE [Suspect]
     Indication: DEPRESSION
     Dosage: 20 MG, QD
     Route: 048
     Dates: start: 20130101, end: 20130616
  2. NATRILIX [Suspect]
     Indication: HYPERTENSION
     Dosage: 2.5 MG, QD
     Route: 048
     Dates: start: 20130101, end: 20130616
  3. OMEPRAZEN [Concomitant]
  4. FOLINA [Concomitant]
     Dosage: 5 MG, UNK
  5. TIKLID [Concomitant]
     Dosage: 250 MG, UNK
  6. ARIMIDEX [Concomitant]
     Dosage: 1 MG, UNK
  7. TAVOR (LORAZEPAM) [Concomitant]
     Dosage: 1 MG, UNK

REACTIONS (4)
  - Cardiac failure [Recovered/Resolved]
  - Cardiac asthma [Recovered/Resolved]
  - Hyponatraemia [Recovered/Resolved]
  - Oedema peripheral [Recovered/Resolved]
